FAERS Safety Report 4636119-X (Version None)
Quarter: 2005Q2

REPORT INFORMATION
  Report Type: 
  Country: None (occurrence: None)
  Receive Date: 20050415
  Receipt Date: 20050405
  Transmission Date: 20051028
  Serious: Yes (Hospitalization)
  Sender: FDA-Public Use
  Company Number: NO-MERCK-0504NOR00012

PATIENT
  Age: 57 Year
  Sex: Male

DRUGS (5)
  1. VIOXX [Suspect]
     Indication: ANKYLOSING SPONDYLITIS
     Route: 048
     Dates: start: 19980101, end: 20040801
  2. METOPROLOL TARTRATE [Concomitant]
     Route: 048
  3. ASPIRIN AND MAGNESIUM OXIDE [Concomitant]
     Route: 048
  4. ZOCOR [Concomitant]
     Route: 048
  5. IRBESARTAN AND HYDROCHLOROTHIAZIDE [Concomitant]
     Route: 048

REACTIONS (6)
  - ASTHENIA [None]
  - CAROTID ARTERY OCCLUSION [None]
  - CEREBRAL INFARCTION [None]
  - FACIAL PARESIS [None]
  - HYPOAESTHESIA [None]
  - SPEECH DISORDER [None]
